FAERS Safety Report 20523550 (Version 1)
Quarter: 2022Q1

REPORT INFORMATION
  Report Type: Spontaneous
  Country: EG (occurrence: EG)
  Receive Date: 20220228
  Receipt Date: 20220228
  Transmission Date: 20220423
  Serious: Yes (Hospitalization)
  Sender: FDA-Public Use
  Company Number: EG-NOVOPROD-892308

PATIENT
  Age: 702 Month
  Sex: Male
  Weight: 105 kg

DRUGS (1)
  1. INSULIN HUMAN [Suspect]
     Active Substance: INSULIN HUMAN
     Indication: Diabetes mellitus
     Dosage: 40 IU, TID
     Route: 058

REACTIONS (2)
  - Hepatitis B [Recovered/Resolved]
  - Coronavirus infection [Recovered/Resolved]
